FAERS Safety Report 7597732-3 (Version None)
Quarter: 2011Q3

REPORT INFORMATION
  Report Type: 
  Country: None (occurrence: None)
  Receive Date: 20110708
  Receipt Date: 20110630
  Transmission Date: 20111222
  Serious: Yes (Death, Hospitalization)
  Sender: FDA-Public Use
  Company Number: JP-GLAXOSMITHKLINE-B0712232A

PATIENT
  Sex: Male
  Weight: 54 kg

DRUGS (16)
  1. RAMELTEON [Concomitant]
     Dosage: .6MG PER DAY
     Route: 042
     Dates: end: 20070521
  2. DIFLUCAN [Concomitant]
     Dosage: 400MG PER DAY
     Route: 048
     Dates: end: 20070531
  3. MAXIPIME [Suspect]
     Indication: PRODUCT USED FOR UNKNOWN INDICATION
     Dosage: 3G PER DAY
     Route: 042
     Dates: start: 20070529, end: 20070601
  4. ZOVIRAX [Concomitant]
     Dosage: 1000MG PER DAY
     Route: 048
     Dates: end: 20070531
  5. METHOTREXATE [Concomitant]
     Indication: IMMUNOSUPPRESSION
     Dosage: 24MG PER DAY
     Route: 065
     Dates: start: 20070525, end: 20070527
  6. LEVOTHYROXINE SODIUM [Concomitant]
     Dosage: 50MG PER DAY
     Route: 048
     Dates: end: 20070621
  7. CIPROFLOXACIN HCL [Concomitant]
     Dosage: 1200MG PER DAY
     Route: 048
     Dates: end: 20070531
  8. FAMOTIDINE [Concomitant]
     Dosage: 40MG PER DAY
     Route: 048
     Dates: end: 20070531
  9. MORPHINE HCL ELIXIR [Suspect]
     Indication: PRODUCT USED FOR UNKNOWN INDICATION
     Route: 065
  10. SULFAMETHOXAZOLE [Concomitant]
     Dosage: 4IUAX PER DAY
     Route: 048
     Dates: end: 20070520
  11. VFEND [Suspect]
     Indication: PRODUCT USED FOR UNKNOWN INDICATION
     Dosage: 600MG PER DAY
     Route: 042
     Dates: start: 20070601, end: 20070618
  12. SODIUM BICARBONATE [Concomitant]
     Dosage: 80MG PER DAY
     Route: 042
     Dates: end: 20070521
  13. FLUDARA [Suspect]
     Indication: ALLOGENIC BONE MARROW TRANSPLANTATION THERAPY
     Dosage: 25MGM2 PER DAY
     Route: 042
     Dates: start: 20070515, end: 20070519
  14. OMEGACIN [Suspect]
     Indication: PRODUCT USED FOR UNKNOWN INDICATION
     Dosage: 1.2G PER DAY
     Route: 042
     Dates: start: 20070601, end: 20070618
  15. SANDIMMUNE [Suspect]
     Indication: IMMUNOSUPPRESSION
     Dosage: 160MG PER DAY
     Route: 065
     Dates: start: 20070520, end: 20070613
  16. ALKERAN [Suspect]
     Indication: ALLOGENIC BONE MARROW TRANSPLANTATION THERAPY
     Dosage: 40MGM2 PER DAY
     Route: 042
     Dates: start: 20070519, end: 20070520

REACTIONS (3)
  - BLOOD CREATINE INCREASED [None]
  - BLOOD BILIRUBIN INCREASED [None]
  - PNEUMONIA FUNGAL [None]
